FAERS Safety Report 19444542 (Version 1)
Quarter: 2021Q2

REPORT INFORMATION
  Report Type: Spontaneous
  Country: JP (occurrence: JP)
  Receive Date: 20210621
  Receipt Date: 20210621
  Transmission Date: 20210717
  Serious: Yes (Other)
  Sender: FDA-Public Use
  Company Number: NVSJ2021JP007072

PATIENT
  Age: 81 Year
  Sex: Female

DRUGS (1)
  1. REVOLADE TAB [Suspect]
     Active Substance: ELTROMBOPAG OLAMINE
     Indication: IMMUNE THROMBOCYTOPENIA
     Dosage: 12.5MG?25MG
     Route: 048
     Dates: start: 20210423, end: 20210506

REACTIONS (4)
  - Immune thrombocytopenia [Not Recovered/Not Resolved]
  - Condition aggravated [Unknown]
  - Dysphagia [Unknown]
  - Condition aggravated [Not Recovered/Not Resolved]
